FAERS Safety Report 7106262-4 (Version None)
Quarter: 2010Q4

REPORT INFORMATION
  Report Type: 
  Country: None (occurrence: None)
  Receive Date: 20101116
  Receipt Date: 20101107
  Transmission Date: 20110411
  Serious: Yes (Hospitalization)
  Sender: FDA-Public Use
  Company Number: IN-GENENTECH-309436

PATIENT
  Age: 62 Year
  Sex: Male

DRUGS (1)
  1. MABTHERA [Suspect]
     Indication: ANTISYNTHETASE SYNDROME
     Dosage: UNK
     Route: 065

REACTIONS (4)
  - ANURIA [None]
  - OEDEMA PERIPHERAL [None]
  - PNEUMONIA [None]
  - TUBERCULOSIS [None]
